FAERS Safety Report 7240111-9 (Version None)
Quarter: 2011Q1

REPORT INFORMATION
  Report Type: 
  Country: None (occurrence: None)
  Receive Date: 20110124
  Receipt Date: 20110117
  Transmission Date: 20110831
  Serious: Yes (Hospitalization)
  Sender: FDA-Public Use
  Company Number: US-JNJFOC-20110104716

PATIENT
  Sex: Female
  Weight: 79.83 kg

DRUGS (15)
  1. DURAGESIC-50 [Suspect]
     Indication: RHEUMATOID ARTHRITIS
     Route: 062
  2. SOMA [Concomitant]
     Indication: MUSCLE RELAXANT THERAPY
     Route: 048
  3. VASOTEC [Concomitant]
     Indication: BLOOD PRESSURE
     Route: 048
  4. ADVAIR [Concomitant]
     Indication: ASTHMA
     Dosage: 100/50MCG
     Route: 055
  5. LYRICA [Concomitant]
     Indication: FIBROMYALGIA
     Route: 048
  6. FIORINAL NOS [Concomitant]
     Indication: HEADACHE
     Route: 048
  7. LOPRESSOR [Concomitant]
     Indication: BLOOD PRESSURE
     Route: 048
  8. DURAGESIC-50 [Suspect]
     Indication: OSTEOARTHRITIS
     Route: 062
  9. FENTANYL-100 [Suspect]
     Indication: RHEUMATOID ARTHRITIS
     Route: 062
  10. FENTANYL-100 [Suspect]
     Indication: OSTEOARTHRITIS
     Route: 062
  11. VENTOLIN [Concomitant]
     Indication: ASTHMA
     Dosage: 4 TIMES PER DAY AS NEEDED
     Route: 055
  12. FENTANYL-100 [Suspect]
     Indication: FIBROMYALGIA
     Route: 062
  13. ZOLOFT [Concomitant]
     Indication: ANTIDEPRESSANT THERAPY
     Route: 048
  14. DURAGESIC-50 [Suspect]
     Indication: FIBROMYALGIA
     Route: 062
  15. ZOCOR [Concomitant]
     Indication: BLOOD CHOLESTEROL
     Route: 048

REACTIONS (7)
  - SCAR [None]
  - ASTHMA [None]
  - INTERVERTEBRAL DISC DEGENERATION [None]
  - DRUG ADMINISTERED AT INAPPROPRIATE SITE [None]
  - ABASIA [None]
  - PAIN IN EXTREMITY [None]
  - HEADACHE [None]
